FAERS Safety Report 5051609-6 (Version None)
Quarter: 2006Q3

REPORT INFORMATION
  Report Type: 
  Country: None (occurrence: None)
  Receive Date: 20060711
  Receipt Date: 20060619
  Transmission Date: 20061208
  Serious: Yes (Hospitalization, Disabling, Other)
  Sender: FDA-Public Use
  Company Number: US200606004835

PATIENT
  Age: 81 Year
  Sex: Female

DRUGS (6)
  1. FORTEO [Suspect]
     Indication: OSTEOPOROSIS
     Dates: start: 20040501
  2. FORTEO [Concomitant]
  3. CALCIUM (CALCIUM) [Concomitant]
  4. CALCIUM W/MAGNESIUM (CALCIUM, MAGNESIUM) [Concomitant]
  5. NUTRILYTE  (CALCIUM GLUCONATE, MAGNESIUM CHLORIDE ANHYDROUS, POTASSIUM [Concomitant]
  6. MIACALCIN [Concomitant]

REACTIONS (7)
  - BALANCE DISORDER [None]
  - BEDRIDDEN [None]
  - DYSSTASIA [None]
  - HYDROCEPHALUS [None]
  - PHARMACEUTICAL PRODUCT COMPLAINT [None]
  - VERTIGO [None]
  - WHEELCHAIR USER [None]
